FAERS Safety Report 5263869-7 (Version None)
Quarter: 2007Q1

REPORT INFORMATION
  Report Type: 
  Country: None (occurrence: None)
  Receive Date: 20061213
  Receipt Date: 20050321
  Transmission Date: 20070707
  Serious: Yes (Other)
  Sender: FDA-Public Use
  Company Number: 2005UW04392

PATIENT
  Age: 77 Year
  Sex: Male
  Weight: 96.161 kg

DRUGS (6)
  1. IRESSA [Suspect]
     Indication: GASTRIC CANCER
     Dosage: 250 MG QD PO
     Route: 048
     Dates: start: 20050301
  2. PLAVIX [Concomitant]
  3. GLUCOTROL [Concomitant]
  4. ZOLOFT [Concomitant]
  5. ALTACE [Concomitant]
  6. COUMADIN [Concomitant]

REACTIONS (3)
  - NASAL OEDEMA [None]
  - RASH [None]
  - RASH PUSTULAR [None]
